FAERS Safety Report 8610687 (Version 2)
Quarter: 2012Q4

REPORT INFORMATION
  Report Type: 
  Country: US (occurrence: US)
  Receive Date: 20120612
  Receipt Date: 20120928
  Transmission Date: 20130627
  Serious: Yes (Other)
  Sender: FDA-Public Use
  Company Number: US-JNJFOC-20120603669

PATIENT
  Age: 50 Year
  Sex: Female

DRUGS (2)
  1. SUDAFED [Suspect]
     Route: 048
  2. SUDAFED [Suspect]
     Indication: PRODUCT USED FOR UNKNOWN INDICATION
     Dosage: took product on two consecutive days
     Route: 048

REACTIONS (1)
  - Anaphylactic shock [Unknown]
